FAERS Safety Report 15779227 (Version 3)
Quarter: 2019Q2

REPORT INFORMATION
  Report Type: Spontaneous
  Country: US (occurrence: US)
  Receive Date: 20190101
  Receipt Date: 20190429
  Transmission Date: 20190711
  Serious: No
  Sender: FDA-Public Use
  Company Number: US-PFIZER INC-2018535961

PATIENT
  Age: 42 Year
  Sex: Female

DRUGS (2)
  1. XELJANZ [Suspect]
     Active Substance: TOFACITINIB CITRATE
     Indication: ALOPECIA
     Dosage: 10 MG, 2X/DAY
     Dates: start: 20180724, end: 20190422
  2. XELJANZ [Suspect]
     Active Substance: TOFACITINIB CITRATE
     Indication: PSORIASIS
     Dosage: 5 MG, TWICE A DAY (X60)
     Route: 048
     Dates: start: 20181205

REACTIONS (4)
  - Rash vesicular [Recovering/Resolving]
  - Oral herpes [Unknown]
  - Paraesthesia [Unknown]
  - Product use in unapproved indication [Unknown]

NARRATIVE: CASE EVENT DATE: 20180724
